FAERS Safety Report 21367469 (Version 1)
Quarter: 2022Q3

REPORT INFORMATION
  Report Type: Spontaneous
  Country: CN (occurrence: CN)
  Receive Date: 20220923
  Receipt Date: 20220923
  Transmission Date: 20221026
  Serious: Yes (Other)
  Sender: FDA-Public Use
  Company Number: None

PATIENT
  Age: 56 Year
  Sex: Female
  Weight: 55 kg

DRUGS (4)
  1. CYCLOPHOSPHAMIDE [Suspect]
     Active Substance: CYCLOPHOSPHAMIDE
     Indication: Lymphoma
     Dosage: 2.5 G, QD
     Route: 041
     Dates: start: 20220218, end: 20220219
  2. MESNA [Suspect]
     Active Substance: MESNA
     Indication: Lymphoma
     Dosage: 0.5 G, QD, D1-D3
     Route: 042
     Dates: start: 20220218, end: 20220220
  3. MESNA [Suspect]
     Active Substance: MESNA
     Dosage: 3.5 G, QD, D1-D3
     Route: 041
     Dates: start: 20220218, end: 20220220
  4. IFOSFAMIDE [Suspect]
     Active Substance: IFOSFAMIDE
     Indication: Lymphoma
     Dosage: 2.5 G, QD, D1-D2 INJECTION
     Route: 041
     Dates: start: 20220218, end: 20220219

REACTIONS (2)
  - Myelosuppression [Unknown]
  - White blood cell count decreased [Recovering/Resolving]

NARRATIVE: CASE EVENT DATE: 20220221
